FAERS Safety Report 17492748 (Version 2)
Quarter: 2020Q1

REPORT INFORMATION
  Report Type: Spontaneous
  Country: US (occurrence: US)
  Receive Date: 20200303
  Receipt Date: 20200305
  Transmission Date: 20200409
  Serious: Yes (Other)
  Sender: FDA-Public Use
  Company Number: US-PFIZER INC-2020093719

PATIENT
  Age: 58 Year
  Sex: Male
  Weight: 122.4 kg

DRUGS (1)
  1. NICOTROL [Suspect]
     Active Substance: NICOTINE
     Indication: SMOKING CESSATION THERAPY
     Dosage: UNK
     Dates: start: 2018

REACTIONS (5)
  - Tobacco poisoning [Unknown]
  - Exercise tolerance decreased [Unknown]
  - Chest pain [Recovering/Resolving]
  - Intentional overdose [Unknown]
  - Drug dependence [Not Recovered/Not Resolved]

NARRATIVE: CASE EVENT DATE: 201902
